FAERS Safety Report 8345976-5 (Version None)
Quarter: 2012Q2

REPORT INFORMATION
  Report Type: 
  Country: None (occurrence: None)
  Receive Date: 20120509
  Receipt Date: 20120505
  Transmission Date: 20120825
  Serious: No
  Sender: FDA-Public Use
  Company Number: US-PFIZER INC-2012110578

PATIENT
  Sex: Female
  Weight: 56.2 kg

DRUGS (5)
  1. PRAVACHOL [Concomitant]
     Indication: BLOOD CHOLESTEROL INCREASED
     Dosage: UNK , DAILY
  2. DIGOXIN [Concomitant]
     Indication: HEART RATE INCREASED
     Dosage: UNK,DAILY
     Dates: start: 20111101
  3. PREMARIN [Suspect]
     Indication: ATROPHIC VULVOVAGINITIS
     Dosage: 2 G, DAILY
     Dates: start: 20120501
  4. COREG [Concomitant]
     Indication: HYPERTENSION
     Dosage: UNK
     Dates: start: 20110101
  5. ALTACE [Concomitant]
     Indication: HYPERTENSION
     Dosage: UNK
     Dates: start: 20110101

REACTIONS (1)
  - VULVOVAGINAL DISCOMFORT [None]
